FAERS Safety Report 11178229 (Version 2)
Quarter: 2015Q2

REPORT INFORMATION
  Report Type: Spontaneous
  Country: JP (occurrence: JP)
  Receive Date: 20150610
  Receipt Date: 20150619
  Transmission Date: 20150821
  Serious: Yes (Other)
  Sender: FDA-Public Use
  Company Number: JP-ABBVIE-15P-087-1407093-00

PATIENT
  Age: 66 Year
  Sex: Male
  Weight: 64 kg

DRUGS (4)
  1. MAGNESIUM OXIDE. [Concomitant]
     Active Substance: MAGNESIUM OXIDE
     Indication: CONSTIPATION
     Route: 048
     Dates: start: 20080812
  2. ETIZOLAM [Concomitant]
     Active Substance: ETIZOLAM
     Indication: INSOMNIA
     Route: 048
     Dates: start: 20090107
  3. ETHYL ICOSAPENTATE [Concomitant]
     Active Substance: ETHYL ICOSAPENTATE
     Indication: DYSLIPIDAEMIA
     Route: 048
     Dates: start: 20130430
  4. TRICOR [Suspect]
     Active Substance: FENOFIBRATE
     Indication: DYSLIPIDAEMIA
     Route: 048
     Dates: start: 20150327, end: 20150601

REACTIONS (1)
  - Hepatic function abnormal [Not Recovered/Not Resolved]

NARRATIVE: CASE EVENT DATE: 20150428
